FAERS Safety Report 6396153-9 (Version None)
Quarter: 2009Q4

REPORT INFORMATION
  Report Type: 
  Country: None (occurrence: None)
  Receive Date: 20091009
  Receipt Date: 20091006
  Transmission Date: 20100525
  Serious: Yes (Hospitalization)
  Sender: FDA-Public Use
  Company Number: US-GILEAD-2009-0023902

PATIENT
  Sex: Female

DRUGS (14)
  1. LETAIRIS [Suspect]
     Indication: PULMONARY ARTERIAL HYPERTENSION
     Route: 048
     Dates: start: 20090520
  2. AMLODIPINE BESYLATE [Concomitant]
  3. METOPROLOL SUCCINATE [Concomitant]
  4. LASIX [Concomitant]
  5. SPIRONOLACTONE [Concomitant]
  6. VENTOLIN [Concomitant]
  7. NITROGLYCERIN [Concomitant]
  8. LIPITOR [Concomitant]
  9. FOLIC ACID [Concomitant]
  10. HUMALOG [Concomitant]
  11. LEVOTHYROXINE [Concomitant]
  12. LANTUS [Concomitant]
  13. PANTOPRAZOLE SODIUM [Concomitant]
  14. FERROUS SULFATE TAB [Concomitant]

REACTIONS (4)
  - DYSPNOEA [None]
  - HYPOTENSION [None]
  - PULMONARY FIBROSIS [None]
  - PULMONARY HYPERTENSION [None]
